FAERS Safety Report 6444226-4 (Version None)
Quarter: 2009Q4

REPORT INFORMATION
  Report Type: 
  Country: None (occurrence: None)
  Receive Date: 20091118
  Receipt Date: 20091112
  Transmission Date: 20100525
  Serious: Yes (Hospitalization)
  Sender: FDA-Public Use
  Company Number: DE-ROCHE-665622

PATIENT
  Sex: Female
  Weight: 69 kg

DRUGS (6)
  1. CAPECITABINE [Suspect]
     Indication: BREAST CANCER
     Dosage: DAYS 1- 14, CYCLES REPEATED EVERY THREE WEEKS.
     Route: 048
     Dates: start: 20090423, end: 20091021
  2. BEVACIZUMAB [Suspect]
     Indication: BREAST CANCER
     Dosage: DAY 1, OF 1 TO 14 DAYS , CYCLES REPEATED EVERY THREE WEEKS.
     Route: 042
     Dates: start: 20090423, end: 20091008
  3. VINORELBIN [Suspect]
     Indication: BREAST CANCER
     Dosage: DRUG: NAVIROL, DAYS 1+ 8, CYCLES REPEATED EVERY THREE WEEKS.
     Route: 042
     Dates: start: 20090423, end: 20091015
  4. METFORMIN HCL [Concomitant]
  5. IBUPROFEN [Concomitant]
  6. CAPTOPRIL [Concomitant]

REACTIONS (1)
  - ANAL ULCER [None]
